FAERS Safety Report 6425742-8 (Version None)
Quarter: 2009Q4

REPORT INFORMATION
  Report Type: 
  Country: None (occurrence: None)
  Receive Date: 20091029
  Receipt Date: 20091016
  Transmission Date: 20100525
  Serious: Yes (Hospitalization)
  Sender: FDA-Public Use
  Company Number: 2009AC000076

PATIENT
  Age: 81 Year
  Sex: Female

DRUGS (27)
  1. DIGOXIN [Suspect]
     Dosage: 0.25 MG; QD; PO
     Route: 048
     Dates: start: 20050601
  2. SYNTHROID [Concomitant]
  3. TOPROL-XL [Concomitant]
  4. AMBIEN [Concomitant]
  5. VALIUM [Concomitant]
  6. CENTRUM [Concomitant]
  7. PAXIL [Concomitant]
  8. METFORMIN HCL [Concomitant]
  9. COLACE [Concomitant]
  10. GLUCOPHAGE [Concomitant]
  11. NITROGLYCERIN [Concomitant]
  12. ASPIRN [Concomitant]
  13. PLAVIX [Concomitant]
  14. NASONEX [Concomitant]
  15. DULCOLAX [Concomitant]
  16. MULTI-VITAMINS [Concomitant]
  17. LORTAB [Concomitant]
  18. GLUCOTROL [Concomitant]
  19. ALTACE [Concomitant]
  20. LASIX [Concomitant]
  21. RAMIPRIL [Concomitant]
  22. POTASSIUM CHLORIDE [Concomitant]
  23. ALDOMET [Concomitant]
  24. REGLAN [Concomitant]
  25. ELAVIL [Concomitant]
  26. NIFEREX [Concomitant]
  27. PRILOSEC [Concomitant]

REACTIONS (20)
  - ANAEMIA [None]
  - AORTIC VALVE INCOMPETENCE [None]
  - ASTHENIA [None]
  - CHANGE OF BOWEL HABIT [None]
  - CHEST PAIN [None]
  - CONSTIPATION [None]
  - CORONARY ARTERY DISEASE [None]
  - DIARRHOEA [None]
  - DIZZINESS [None]
  - DYSPNOEA [None]
  - ECONOMIC PROBLEM [None]
  - FEELING ABNORMAL [None]
  - HYPERHIDROSIS [None]
  - MITRAL VALVE CALCIFICATION [None]
  - MITRAL VALVE INCOMPETENCE [None]
  - MULTIPLE INJURIES [None]
  - NAUSEA [None]
  - PALPITATIONS [None]
  - SURGERY [None]
  - TRICUSPID VALVE INCOMPETENCE [None]
